FAERS Safety Report 7409473-3 (Version None)
Quarter: 2011Q2

REPORT INFORMATION
  Report Type: 
  Country: None (occurrence: None)
  Receive Date: 20110412
  Receipt Date: 20110316
  Transmission Date: 20111010
  Serious: No
  Sender: FDA-Public Use
  Company Number: US-B.I. PHARMACEUTICALS,INC./RIDGEFIELD-2011-BP-09035BP

PATIENT
  Sex: Female

DRUGS (2)
  1. PRADAXA [Suspect]
     Indication: ATRIAL FIBRILLATION
     Dosage: 300 MG
     Route: 048
     Dates: start: 20110301, end: 20110301
  2. DIGOXIN [Suspect]
     Dates: start: 20110301, end: 20110301

REACTIONS (4)
  - DYSPEPSIA [None]
  - DIZZINESS [None]
  - VOMITING [None]
  - NAUSEA [None]
